FAERS Safety Report 11008309 (Version 1)
Quarter: 2015Q2

REPORT INFORMATION
  Report Type: Spontaneous
  Country: AR (occurrence: AR)
  Receive Date: 20150410
  Receipt Date: 20150410
  Transmission Date: 20150821
  Serious: Yes (Other)
  Sender: FDA-Public Use
  Company Number: AR-BAYER-2015-091316

PATIENT
  Age: 52 Year
  Sex: Male

DRUGS (2)
  1. NEXAVAR [Suspect]
     Active Substance: SORAFENIB
     Indication: HEPATOCELLULAR CARCINOMA
     Dosage: 800 MG, QD
     Route: 048
     Dates: start: 201402, end: 2014
  2. NEXAVAR [Suspect]
     Active Substance: SORAFENIB
     Indication: HEPATOCELLULAR CARCINOMA
     Dosage: UNKNOWN DOSE
     Dates: end: 201501

REACTIONS (6)
  - Palmar-plantar erythrodysaesthesia syndrome [None]
  - Pruritus [None]
  - Tri-iodothyronine increased [None]
  - Blood thyroid stimulating hormone decreased [None]
  - Diarrhoea [None]
  - Hepatocellular carcinoma [Not Recovered/Not Resolved]

NARRATIVE: CASE EVENT DATE: 201402
